FAERS Safety Report 7352023-0 (Version None)
Quarter: 2011Q1

REPORT INFORMATION
  Report Type: 
  Country: None (occurrence: None)
  Receive Date: 20110315
  Receipt Date: 20110308
  Transmission Date: 20110831
  Serious: Yes (Death, Life-Threatening, Other)
  Sender: FDA-Public Use
  Company Number: US-JNJFOC-20110304241

PATIENT
  Age: 70 Year
  Sex: Male

DRUGS (3)
  1. LEVAQUIN [Suspect]
     Indication: INFECTION PROPHYLAXIS
     Route: 065
  2. CLOFARABINE [Suspect]
     Route: 048
  3. CLOFARABINE [Suspect]
     Indication: MYELODYSPLASTIC SYNDROME
     Dosage: DAILY FOR 5 DAYS. REPEATED FOR EVERY 4-8 WEEKS
     Route: 048

REACTIONS (4)
  - DRUG INEFFECTIVE [None]
  - PNEUMONIA [None]
  - RENAL FAILURE ACUTE [None]
  - SEPSIS [None]
